FAERS Safety Report 17591370 (Version 1)
Quarter: 2020Q1

REPORT INFORMATION
  Report Type: Spontaneous
  Country: US (occurrence: US)
  Receive Date: 20200327
  Receipt Date: 20200327
  Transmission Date: 20200409
  Serious: Yes (Life-Threatening, Hospitalization, Other)
  Sender: FDA-Public Use
  Company Number: US-AXELLIA-003062

PATIENT
  Age: 61 Year
  Sex: Male

DRUGS (8)
  1. OSELTAMIVIR [Concomitant]
     Active Substance: OSELTAMIVIR
     Indication: PNEUMONIA
  2. CEFTRIAXONE. [Suspect]
     Active Substance: CEFTRIAXONE
     Indication: PNEUMONIA
  3. VANCOMYCIN [Suspect]
     Active Substance: VANCOMYCIN
     Indication: PNEUMONIA INFLUENZAL
  4. AZITHROMYCIN ANHYDROUS. [Suspect]
     Active Substance: AZITHROMYCIN ANHYDROUS
     Indication: PNEUMONIA
  5. AZITHROMYCIN ANHYDROUS. [Suspect]
     Active Substance: AZITHROMYCIN ANHYDROUS
     Indication: PNEUMONIA
  6. OSELTAMIVIR/OSELTAMIVIR PHOSPHATE [Concomitant]
     Active Substance: OSELTAMIVIR PHOSPHATE
     Indication: PNEUMONIA
  7. VANCOMYCIN [Suspect]
     Active Substance: VANCOMYCIN
     Indication: PNEUMONIA
  8. CEFTRIAXONE. [Suspect]
     Active Substance: CEFTRIAXONE
     Indication: PNEUMONIA

REACTIONS (3)
  - Pneumonia pneumococcal [Recovered/Resolved]
  - Bacterial infection [Recovered/Resolved]
  - Stenotrophomonas infection [Recovered/Resolved]
